FAERS Safety Report 8244576-5 (Version None)
Quarter: 2012Q1

REPORT INFORMATION
  Report Type: 
  Country: None (occurrence: None)
  Receive Date: 20120329
  Receipt Date: 20120329
  Transmission Date: 20120608
  Serious: Yes (Hospitalization, Other)
  Sender: FDA-Public Use
  Company Number: DE-JNJFOC-20120213563

PATIENT
  Sex: Female
  Weight: 117 kg

DRUGS (6)
  1. BETAHISTINE MESILATE [Concomitant]
  2. XARELTO [Suspect]
     Indication: DEEP VEIN THROMBOSIS
     Route: 048
     Dates: start: 20120131, end: 20120221
  3. MARCUMAR [Concomitant]
     Indication: EMBOLISM VENOUS
     Dates: start: 20111218, end: 20120131
  4. MICARDIS [Concomitant]
  5. LERCANIDIPINE [Concomitant]
  6. HEPARIN [Concomitant]

REACTIONS (5)
  - BLOOD BILIRUBIN INCREASED [None]
  - ALANINE AMINOTRANSFERASE INCREASED [None]
  - ASPARTATE AMINOTRANSFERASE INCREASED [None]
  - LIVER FUNCTION TEST ABNORMAL [None]
  - RENAL IMPAIRMENT [None]
